FAERS Safety Report 8962963 (Version 2)
Quarter: 2013Q1

REPORT INFORMATION
  Report Type: Spontaneous
  Country: US (occurrence: US)
  Receive Date: 20121213
  Receipt Date: 20130122
  Transmission Date: 20140127
  Serious: Yes (Death, Hospitalization, Other)
  Sender: FDA-Public Use
  Company Number: US-PFIZER INC-2012314380

PATIENT
  Age: 50 Year
  Sex: Female
  Weight: 81.6 kg

DRUGS (19)
  1. XALKORI [Suspect]
     Indication: LUNG CANCER METASTATIC
     Dosage: 250 MG, 2X/DAY
     Dates: start: 20110927
  2. XALKORI [Suspect]
     Dosage: 200 MG, 2X/DAY
     Dates: start: 20120126, end: 201203
  3. XALKORI [Suspect]
     Dosage: 250 MG, 2X/DAY
     Dates: start: 20120516
  4. LASIX [Concomitant]
     Indication: PLEURAL EFFUSION
     Dosage: 20 MG, 2X/DAY
     Route: 048
     Dates: start: 2012
  5. COLACE [Concomitant]
     Indication: ABDOMINAL DISCOMFORT
     Dosage: UNK
  6. XANAX [Concomitant]
     Dosage: 0.25 MG, AS NEEDED
  7. CALCIUM WITH VITAMIN D [Concomitant]
     Dosage: UNK, 3X/DAY (3 TIMES A DAY)
  8. CELEXA [Concomitant]
     Indication: DEPRESSION
     Dosage: 20 MG, 1X/DAY
  9. MAGNESIUM OXIDE [Concomitant]
     Dosage: 400 MG, 1X/DAY (DAILY)
  10. CALCIUM [Concomitant]
     Dosage: UNK
  11. VITAMIN D [Concomitant]
     Dosage: UNK
  12. HEPARIN [Concomitant]
     Dosage: 5000 IU, 2X/DAY
  13. NALOXONE [Concomitant]
     Dosage: UNK
  14. ZOFRAN [Concomitant]
     Dosage: UNK
  15. NORMAL SALINE [Concomitant]
     Dosage: UNK
  16. AMBIEN [Concomitant]
     Dosage: UNK
  17. DILAUDID [Concomitant]
     Dosage: 2.6 MG, (2.6 MG OF DILAUDID THIS MORNING OVER A 4-HOUR PERIOD OF TIME)
  18. LIDOCAINE [Concomitant]
     Dosage: UNK
  19. ZOSYN [Concomitant]
     Dosage: 4.5 G, (Q. 6 H)

REACTIONS (18)
  - Death [Fatal]
  - Septic shock [Unknown]
  - Atrial fibrillation [Unknown]
  - Respiratory failure [Unknown]
  - Encephalopathy [Unknown]
  - Renal failure acute [Unknown]
  - Local swelling [Unknown]
  - Thrombocytopenia [Unknown]
  - Neck pain [Unknown]
  - Trigger finger [Unknown]
  - Rash [Unknown]
  - Alanine aminotransferase increased [Unknown]
  - Aspartate aminotransferase increased [Unknown]
  - Blood albumin decreased [Unknown]
  - Hypokalaemia [Unknown]
  - Hyponatraemia [Unknown]
  - Disease progression [Unknown]
  - Lung cancer metastatic [Unknown]
